FAERS Safety Report 5776457-0 (Version None)
Quarter: 2008Q2

REPORT INFORMATION
  Report Type: 
  Country: None (occurrence: None)
  Receive Date: 20080617
  Receipt Date: 20080617
  Transmission Date: 20081010
  Serious: No
  Sender: FDA-Public Use
  Company Number: None

PATIENT
  Age: 70 Year
  Sex: Male
  Weight: 88.4514 kg

DRUGS (1)
  1. DIGITEK  0.25       BERTK [Suspect]
     Indication: HEART RATE IRREGULAR
     Dosage: 1 DAILY  PO
     Route: 048
     Dates: start: 20080319, end: 20080615

REACTIONS (3)
  - FATIGUE [None]
  - NAUSEA [None]
  - PHARMACEUTICAL PRODUCT COMPLAINT [None]
